FAERS Safety Report 20246185 (Version 1)
Quarter: 2021Q4

REPORT INFORMATION
  Report Type: Spontaneous
  Country: US (occurrence: US)
  Receive Date: 20211229
  Receipt Date: 20211229
  Transmission Date: 20220303
  Serious: No
  Sender: FDA-Public Use
  Company Number: US-JNJFOC-20211230722

PATIENT
  Sex: Female
  Weight: 56.750 kg

DRUGS (3)
  1. INVEGA SUSTENNA [Suspect]
     Active Substance: PALIPERIDONE PALMITATE
     Indication: Product used for unknown indication
     Route: 030
     Dates: start: 20211203
  2. INVEGA SUSTENNA [Suspect]
     Active Substance: PALIPERIDONE PALMITATE
  3. INVEGA SUSTENNA [Suspect]
     Active Substance: PALIPERIDONE PALMITATE

REACTIONS (9)
  - Feeling abnormal [Unknown]
  - Impaired self-care [Unknown]
  - Hypoaesthesia [Unknown]
  - Boredom [Unknown]
  - Anhedonia [Unknown]
  - Depression [Unknown]
  - Decreased interest [Unknown]
  - Weight increased [Unknown]
  - Drug ineffective [Unknown]
